FAERS Safety Report 5233143-3 (Version None)
Quarter: 2007Q1

REPORT INFORMATION
  Report Type: 
  Country: None (occurrence: None)
  Receive Date: 20070207
  Receipt Date: 20070128
  Transmission Date: 20070707
  Serious: Yes (Hospitalization)
  Sender: FDA-Public Use
  Company Number: ZA-PFIZER INC-2007007561

PATIENT
  Age: 52 Year
  Sex: Male

DRUGS (2)
  1. CARDURA [Suspect]
     Route: 048
  2. DOXAZOSIN MESYLATE [Suspect]
     Route: 048

REACTIONS (2)
  - HYPOTENSION [None]
  - HYPOVOLAEMIA [None]
